FAERS Safety Report 7392998-7 (Version None)
Quarter: 2011Q2

REPORT INFORMATION
  Report Type: 
  Country: None (occurrence: None)
  Receive Date: 20110404
  Receipt Date: 20110322
  Transmission Date: 20111010
  Serious: Yes (Other)
  Sender: FDA-Public Use
  Company Number: FR-WATSON-2011-03042

PATIENT
  Age: 69 Year
  Sex: Female
  Weight: 57 kg

DRUGS (4)
  1. SUFENTANIL [Suspect]
     Indication: ANAESTHESIA
     Dosage: 15 MICROGRAMS
  2. ATRACURIUM BESYLATE [Suspect]
     Indication: ANAESTHESIA
     Dosage: 25 MG, UNKNOWN
     Route: 042
  3. PROPOFOL [Suspect]
     Indication: ANAESTHESIA
     Dosage: 130 MG, SINGLE
  4. HYDROXYZINE HCL [Suspect]
     Indication: PREMEDICATION
     Dosage: 50 MG, SINGLE

REACTIONS (2)
  - MASTOCYTOSIS [None]
  - DRUG RASH WITH EOSINOPHILIA AND SYSTEMIC SYMPTOMS [None]
